FAERS Safety Report 4338068-3 (Version None)
Quarter: 2004Q2

REPORT INFORMATION
  Report Type: 
  Country: None (occurrence: None)
  Receive Date: 20040407
  Receipt Date: 20040331
  Transmission Date: 20050107
  Serious: Yes (Hospitalization, Other)
  Sender: FDA-Public Use
  Company Number: IT-JNJFOC-20040302964

PATIENT
  Age: 17 Year
  Sex: Male

DRUGS (8)
  1. TOPAMAX [Suspect]
     Indication: EPILEPSY
     Dosage: SEE IMAGE
     Dates: start: 20020701
  2. VALPROIC ACID [Suspect]
     Indication: EPILEPSY
     Dosage: SEE IMAGE
     Dates: start: 20020101
  3. VALPROIC ACID [Suspect]
     Indication: EPILEPSY
     Dosage: SEE IMAGE
     Dates: start: 20020101
  4. VALPROIC ACID [Suspect]
     Indication: EPILEPSY
     Dosage: SEE IMAGE
     Dates: start: 20020701
  5. VALPROIC ACID [Suspect]
     Indication: EPILEPSY
     Dosage: SEE IMAGE
     Dates: start: 20020701
  6. PHENOBARBITAL TAB [Concomitant]
  7. LEV (LEVETIRACETAM) [Concomitant]
  8. CBZ (CARBAMAZEPINE) [Concomitant]

REACTIONS (11)
  - AMMONIA INCREASED [None]
  - COMA [None]
  - DISEASE RECURRENCE [None]
  - ENCEPHALOPATHY [None]
  - HEPATOCELLULAR DAMAGE [None]
  - MUSCLE INJURY [None]
  - MYOCLONIC EPILEPSY [None]
  - NUCLEAR MAGNETIC RESONANCE IMAGING BRAIN ABNORMAL [None]
  - PARTIAL SEIZURES [None]
  - POLYNEUROPATHY [None]
  - STUPOR [None]
